FAERS Safety Report 15851876 (Version 1)
Quarter: 2019Q1

REPORT INFORMATION
  Report Type: Spontaneous
  Country: AU (occurrence: AU)
  Receive Date: 20190122
  Receipt Date: 20190122
  Transmission Date: 20190417
  Serious: Yes (Other)
  Sender: FDA-Public Use
  Company Number: AU-MACLEODS PHARMACEUTICALS US LTD-MAC2019019667

PATIENT

DRUGS (2)
  1. DULOXETINE 60 MG [Suspect]
     Active Substance: DULOXETINE
     Indication: OBSESSIVE RUMINATION
     Dosage: 60 MILLIGRAM
     Route: 065
  2. QUETIAPINE 25 MG [Suspect]
     Active Substance: QUETIAPINE
     Indication: ANXIETY
     Dosage: 25 MILLIGRAM
     Route: 065

REACTIONS (1)
  - Priapism [Recovered/Resolved]
